FAERS Safety Report 8225663-4 (Version None)
Quarter: 2012Q1

REPORT INFORMATION
  Report Type: 
  Country: None (occurrence: None)
  Receive Date: 20120321
  Receipt Date: 20120319
  Transmission Date: 20120608
  Serious: Yes (Other)
  Sender: FDA-Public Use
  Company Number: US-PFIZER INC-2012071603

PATIENT
  Sex: Male
  Weight: 79 kg

DRUGS (7)
  1. EFFIENT [Concomitant]
     Dosage: 10 MG, 1X/DAY
  2. AMLODIPINE [Concomitant]
     Dosage: 2.5 MG, UNK
  3. ACETYLSALICYLIC ACID [Concomitant]
     Dosage: UNK, 1X/DAY
  4. KLONOPIN [Concomitant]
     Indication: ANXIETY
     Dosage: UNK
  5. IMDUR [Concomitant]
     Dosage: UNK
  6. LIPITOR [Suspect]
     Indication: BLOOD CHOLESTEROL INCREASED
     Dosage: UNK
     Route: 048
  7. NITROSTAT [Concomitant]
     Dosage: UNK

REACTIONS (2)
  - MYOCARDIAL INFARCTION [None]
  - CORONARY ARTERY OCCLUSION [None]
